FAERS Safety Report 12227844 (Version 1)
Quarter: 2016Q2

REPORT INFORMATION
  Report Type: Spontaneous
  Country: JP (occurrence: JP)
  Receive Date: 20160401
  Receipt Date: 20160401
  Transmission Date: 20160815
  Serious: Yes (Hospitalization)
  Sender: FDA-Public Use
  Company Number: JP-TAKEDA-2016TJP006040

PATIENT
  Age: 80 Year
  Sex: Female

DRUGS (1)
  1. TAKELDA COMBINATION TABLETS [Suspect]
     Active Substance: ASPIRIN\LANSOPRAZOLE
     Indication: PRODUCT USED FOR UNKNOWN INDICATION
     Dosage: 1 DF, UNK
     Route: 048

REACTIONS (1)
  - Lung disorder [Unknown]
